FAERS Safety Report 6377763-1 (Version None)
Quarter: 2009Q3

REPORT INFORMATION
  Report Type: 
  Country: None (occurrence: None)
  Receive Date: 20090921
  Receipt Date: 20090909
  Transmission Date: 20100115
  Serious: Yes (Hospitalization)
  Sender: FDA-Public Use
  Company Number: 8051829

PATIENT
  Age: 53 Year
  Sex: Female
  Weight: 90.7 kg

DRUGS (11)
  1. CIMZIA [Suspect]
     Indication: CROHN'S DISEASE
     Dosage: 400 MG SC
     Route: 058
     Dates: start: 20090714
  2. LIPITOR [Concomitant]
  3. ZYRTEC [Concomitant]
  4. LEXAPRO [Concomitant]
  5. TRAZODONE [Concomitant]
  6. .. [Concomitant]
  7. .. [Concomitant]
  8. .. [Concomitant]
  9. .. [Concomitant]
  10. .. [Concomitant]
  11. .. [Concomitant]

REACTIONS (5)
  - AGEUSIA [None]
  - ANOSMIA [None]
  - ASTHENOPIA [None]
  - DRUG INEFFECTIVE [None]
  - DRY EYE [None]
